FAERS Safety Report 25513731 (Version 1)
Quarter: 2025Q3

REPORT INFORMATION
  Report Type: Spontaneous
  Country: US (occurrence: US)
  Receive Date: 20250703
  Receipt Date: 20250703
  Transmission Date: 20251020
  Serious: No
  Sender: RADIUS PHARM
  Company Number: US-RADIUS HEALTH INC.-2024US009072

PATIENT
  Age: 74 Year
  Sex: Female

DRUGS (1)
  1. TYMLOS [Suspect]
     Active Substance: ABALOPARATIDE
     Indication: Product used for unknown indication
     Route: 058
     Dates: start: 20241104

REACTIONS (5)
  - Unevaluable event [Unknown]
  - Confusional state [Unknown]
  - Fear of injection [Unknown]
  - Product quality issue [Unknown]
  - Dizziness [Unknown]

NARRATIVE: CASE EVENT DATE: 20241101
